FAERS Safety Report 10477589 (Version 1)
Quarter: 2014Q3

REPORT INFORMATION
  Report Type: Spontaneous
  Country: JP (occurrence: JP)
  Receive Date: 20140926
  Receipt Date: 20140926
  Transmission Date: 20150326
  Serious: Yes (Other)
  Sender: FDA-Public Use
  Company Number: JP-VERTEX PHARMACEUTICALS-2014-004087

PATIENT
  Age: 72 Year
  Sex: Male

DRUGS (1)
  1. TELAVIC [Suspect]
     Active Substance: TELAPREVIR
     Indication: CHRONIC HEPATITIS C
     Dosage: UNK
     Route: 048

REACTIONS (3)
  - Glomerulonephritis acute [Unknown]
  - Rash generalised [Unknown]
  - Cryoglobulinaemia [Unknown]
